FAERS Safety Report 7240765-7 (Version None)
Quarter: 2011Q1

REPORT INFORMATION
  Report Type: 
  Country: None (occurrence: None)
  Receive Date: 20110113
  Receipt Date: 20110106
  Transmission Date: 20110831
  Serious: Yes (Hospitalization)
  Sender: FDA-Public Use
  Company Number: 2010SP005950

PATIENT
  Age: 30 Year
  Sex: Female
  Weight: 113.3993 kg

DRUGS (4)
  1. FLOVENT [Concomitant]
  2. METOPROLOL [Concomitant]
  3. NUVARING [Suspect]
     Indication: CONTRACEPTION
     Dosage: VAG
     Route: 067
     Dates: start: 20080201, end: 20080303
  4. ALBUTEROL [Concomitant]

REACTIONS (5)
  - MICROCYTIC ANAEMIA [None]
  - PERNICIOUS ANAEMIA [None]
  - MENORRHAGIA [None]
  - DEEP VEIN THROMBOSIS [None]
  - HYPERTENSION [None]
